FAERS Safety Report 10039372 (Version 1)
Quarter: 2014Q1

REPORT INFORMATION
  Report Type: Report from Study
  Country: MX (occurrence: MX)
  Receive Date: 20140326
  Receipt Date: 20140326
  Transmission Date: 20141002
  Serious: Yes (Hospitalization, Other)
  Sender: FDA-Public Use
  Company Number: PHHY2014MX036061

PATIENT
  Age: 77 Year
  Sex: Female

DRUGS (3)
  1. EXFORGE [Suspect]
     Indication: HYPERTENSION
     Dosage: 1 DF(160/5MG), DAILY
     Route: 048
     Dates: start: 201204, end: 20140101
  2. GLYVENOL [Suspect]
     Indication: VENOUS INSUFFICIENCY
     Dosage: 1 DF(400MG), DAILY
     Route: 048
  3. TRAMADOL [Concomitant]
     Indication: RHEUMATOID ARTHRITIS
     Dosage: 2 DF(100ML), DAILY
     Route: 048
     Dates: start: 201401

REACTIONS (6)
  - Duodenal ulcer haemorrhage [Recovered/Resolved]
  - Rectal haemorrhage [Recovered/Resolved]
  - Bronchitis [Recovered/Resolved]
  - Haemoglobin decreased [Recovered/Resolved]
  - Malaise [Recovered/Resolved]
  - Bone pain [Unknown]
